FAERS Safety Report 6144952-0 (Version None)
Quarter: 2009Q2

REPORT INFORMATION
  Report Type: 
  Country: None (occurrence: None)
  Receive Date: 20090402
  Receipt Date: 20090402
  Transmission Date: 20091009
  Serious: Yes (Other)
  Sender: FDA-Public Use
  Company Number: None

PATIENT
  Age: 28 Year
  Sex: Female
  Weight: 50 kg

DRUGS (1)
  1. LEVAQUIN [Suspect]
     Indication: SINUSITIS
     Dosage: 750MG 1 DAY FOR 10 DAYS PO
     Route: 048
     Dates: start: 20090331, end: 20090401

REACTIONS (5)
  - COLD SWEAT [None]
  - HALLUCINATION [None]
  - MUSCULAR WEAKNESS [None]
  - RESTLESSNESS [None]
  - SOMNOLENCE [None]
